FAERS Safety Report 13742280 (Version 1)
Quarter: 2017Q3

REPORT INFORMATION
  Report Type: Spontaneous
  Country: JP (occurrence: JP)
  Receive Date: 20170711
  Receipt Date: 20170711
  Transmission Date: 20171127
  Serious: Yes (Other)
  Sender: FDA-Public Use
  Company Number: PHHY2010JP45528

PATIENT

DRUGS (1)
  1. MIKELAN LA 2% (NVO) [Suspect]
     Active Substance: CARTEOLOL HYDROCHLORIDE
     Dosage: UNK
     Route: 047
     Dates: start: 200910

REACTIONS (1)
  - Anosmia [Unknown]
